FAERS Safety Report 8348033-7 (Version None)
Quarter: 2012Q2

REPORT INFORMATION
  Report Type: 
  Country: None (occurrence: None)
  Receive Date: 20120507
  Receipt Date: 20120427
  Transmission Date: 20120825
  Serious: Yes (Other)
  Sender: FDA-Public Use
  Company Number: GER/UKI/12/0023963

PATIENT
  Age: 18 Year
  Sex: Female
  Weight: 54 kg

DRUGS (5)
  1. DOXYCYCLINE [Concomitant]
  2. NEXPLANON [Suspect]
     Indication: CONTRACEPTION
     Dosage: 68 MG, SUBDERMAL
     Route: 059
     Dates: start: 20110301
  3. LAMOTRIGINE [Suspect]
     Indication: EPILEPSY
     Dosage: 200 MG, 2 IN 1 D, ORAL
     Route: 048
     Dates: start: 20101101
  4. KEPPRA [Suspect]
     Indication: PRODUCT USED FOR UNKNOWN INDICATION
  5. LORATADINE [Concomitant]

REACTIONS (3)
  - CONVULSION [None]
  - DRUG INTERACTION [None]
  - CONDITION AGGRAVATED [None]
